FAERS Safety Report 4553735-4 (Version None)
Quarter: 2004Q4

REPORT INFORMATION
  Report Type: 
  Country: None (occurrence: None)
  Receive Date: 20041227
  Receipt Date: 20041118
  Transmission Date: 20050328
  Serious: No
  Sender: FDA-Public Use
  Company Number: 04P-163-0278184-00

PATIENT
  Age: 74 Year
  Sex: Female
  Weight: 70.3075 kg

DRUGS (11)
  1. HUMIRA [Suspect]
     Indication: RHEUMATOID ARTHRITIS
     Dosage: 40 MG 1 IN 2 WK, SUBCUTANEOUS
     Route: 058
     Dates: start: 20040201, end: 20040601
  2. HUMIRA [Suspect]
     Indication: RHEUMATOID ARTHRITIS
     Dosage: 40 MG 1 IN 2 WK, SUBCUTANEOUS
     Route: 058
     Dates: start: 20041011
  3. PREDNISONE [Concomitant]
  4. METHOTREXATE [Concomitant]
  5. BUCINDOLOL HYDROCHLORIDE [Concomitant]
  6. FOLIC ACID [Concomitant]
  7. PEDIACARE COUGH-COLD [Concomitant]
  8. ACIPNEX [Concomitant]
  9. CYPROHEPTADINE HYDROCHLORIDE [Concomitant]
  10. LEXAPRO [Concomitant]
  11. ACETYLSALICYLIC ACID SRT [Concomitant]

REACTIONS (2)
  - COUGH [None]
  - DYSPEPSIA [None]
